FAERS Safety Report 7333051-8 (Version None)
Quarter: 2011Q1

REPORT INFORMATION
  Report Type: 
  Country: None (occurrence: None)
  Receive Date: 20110304
  Receipt Date: 20110302
  Transmission Date: 20110831
  Serious: Yes (Other)
  Sender: FDA-Public Use
  Company Number: US-PFIZER INC-2008098361

PATIENT
  Sex: Female

DRUGS (2)
  1. TIKOSYN [Suspect]
     Dosage: UNK
  2. MACROBID [Suspect]
     Indication: URINARY TRACT INFECTION

REACTIONS (3)
  - NAUSEA [None]
  - URINARY TRACT INFECTION [None]
  - TOOTHACHE [None]
